FAERS Safety Report 8018352-2 (Version None)
Quarter: 2012Q1

REPORT INFORMATION
  Report Type: 
  Country: None (occurrence: None)
  Receive Date: 20120103
  Receipt Date: 20111229
  Transmission Date: 20120608
  Serious: Yes (Hospitalization, Other)
  Sender: FDA-Public Use
  Company Number: US-PFIZER INC-2003039135

PATIENT
  Sex: Female
  Weight: 74.83 kg

DRUGS (11)
  1. ACCUPRIL [Concomitant]
     Dosage: 50 MG, 1X/DAY
  2. ZOLOFT [Concomitant]
     Dosage: 100 MG DAILY
     Route: 048
  3. ACCUPRIL [Concomitant]
     Dosage: 10 MG, UNK
  4. ZOLOFT [Concomitant]
     Dosage: 150 MG DAILY
     Route: 048
     Dates: start: 20091001
  5. ALPRAZOLAM [Concomitant]
     Indication: ANXIETY
  6. NEURONTIN [Suspect]
     Indication: GRAND MAL CONVULSION
     Dosage: 300MG OR 400MG THREE TIMES DAILY
     Route: 048
     Dates: start: 20010801, end: 20091101
  7. NEURONTIN [Suspect]
     Dosage: 1200 MG DAILY
     Route: 048
  8. ZOLOFT [Concomitant]
     Indication: DEPRESSION
     Dosage: 100 MG DAILY
     Route: 048
     Dates: start: 20000601
  9. ALPRAZOLAM [Concomitant]
     Indication: PANIC ATTACK
     Dosage: 0.5 MG, 1X/DAY
     Route: 048
  10. NEURONTIN [Suspect]
     Dosage: 2400 MG DAILY
     Route: 048
  11. ZOLOFT [Concomitant]
     Dosage: 50 MG DAILY
     Route: 048
     Dates: start: 20010822

REACTIONS (18)
  - WITHDRAWAL SYNDROME [None]
  - HYPOAESTHESIA [None]
  - COUGH [None]
  - COMA [None]
  - NERVOUSNESS [None]
  - FALL [None]
  - HYPERHIDROSIS [None]
  - FATIGUE [None]
  - THERAPY REGIMEN CHANGED [None]
  - HYPERTENSION [None]
  - MENOPAUSAL SYMPTOMS [None]
  - RETCHING [None]
  - GRAND MAL CONVULSION [None]
  - CONVULSION [None]
  - ANKLE FRACTURE [None]
  - DIARRHOEA [None]
  - DEPRESSION [None]
  - ABDOMINAL PAIN UPPER [None]
